FAERS Safety Report 10162728 (Version 1)
Quarter: 2014Q2

REPORT INFORMATION
  Report Type: Spontaneous
  Country: CO (occurrence: CO)
  Receive Date: 20140509
  Receipt Date: 20140509
  Transmission Date: 20141212
  Serious: Yes (Other)
  Sender: FDA-Public Use
  Company Number: CO-PFIZER INC-2014126442

PATIENT
  Age: 12 Year
  Sex: Female

DRUGS (1)
  1. GENOTROPIN [Suspect]
     Indication: FAILURE TO THRIVE
     Dosage: 36 IU, 1X/DAY
     Route: 058
     Dates: start: 2011, end: 2013

REACTIONS (3)
  - Acral overgrowth [Unknown]
  - Exophthalmos [Unknown]
  - Bone deformity [Unknown]
